FAERS Safety Report 24627616 (Version 2)
Quarter: 2024Q4

REPORT INFORMATION
  Report Type: Spontaneous
  Country: GB (occurrence: GB)
  Receive Date: 20241116
  Receipt Date: 20241122
  Transmission Date: 20250115
  Serious: Yes (Other)
  Sender: AUROBINDO
  Company Number: GB-MHRA-EMIS-2338-3d022a48-d57f-4cf1-8225-ec5c42adbb33

PATIENT
  Age: 52 Year
  Sex: Female
  Weight: 57 kg

DRUGS (5)
  1. CLARITHROMYCIN [Suspect]
     Active Substance: CLARITHROMYCIN
     Indication: Product used for unknown indication
     Dosage: 1 DOSAGE FORM, TWO TIMES A DAY
     Route: 065
     Dates: start: 20241021, end: 20241024
  2. Ciprofloxacin 0.3% and dexamethasone 0.1% [Concomitant]
     Indication: Product used for unknown indication
     Dosage: 4 DOSAGE FORM, TWO TIMES A DAY,TO THE EFFECTED EAR FOR 7 DAYS5ML
     Route: 065
     Dates: start: 20241007
  3. Ciprofloxacin 0.3% and dexamethasone 0.1% [Concomitant]
     Dosage: 4 DOSAGE FORM, TWO TIMES A DAY,TO THE EFFECTED EAR FOR 7 DAYS5ML
     Route: 065
     Dates: start: 20241021
  4. AMOXICILLIN [Concomitant]
     Active Substance: AMOXICILLIN
     Indication: Product used for unknown indication
     Dosage: 1 DOSAGE FORM, 3 TIMES A DAY,FOR FIVE DAYS
     Route: 065
     Dates: start: 20241015
  5. MOMETASONE [Concomitant]
     Active Substance: MOMETASONE
     Indication: Acute sinusitis
     Dosage: 4 DOSAGE FORM, TWO TIMES A DAY, TO BE USED IN EACH NOSTRIL TWICE A DAY, THEN REDUCE WHEN SYMPTOMS UN
     Route: 045
     Dates: start: 20241015

REACTIONS (1)
  - Suicidal ideation [Recovered/Resolved]

NARRATIVE: CASE EVENT DATE: 20241021
